FAERS Safety Report 19025910 (Version 1)
Quarter: 2021Q1

REPORT INFORMATION
  Report Type: Spontaneous
  Country: US (occurrence: US)
  Receive Date: 20210318
  Receipt Date: 20210318
  Transmission Date: 20210420
  Serious: Yes (Hospitalization)
  Sender: FDA-Public Use
  Company Number: None

PATIENT
  Age: 62 Year
  Sex: Female
  Weight: 31.98 kg

DRUGS (9)
  1. LACTULOSE 30 ML EVENING [Concomitant]
  2. DOCUSATE 100 MG BID [Concomitant]
  3. CLOBAZAM 10 MG BID [Concomitant]
  4. SULFAMETHOXAZOLE?TRIMETHOPRIM [Suspect]
     Active Substance: SULFAMETHOXAZOLE\TRIMETHOPRIM
     Indication: URINARY TRACT INFECTION
     Route: 048
     Dates: start: 20210226, end: 20210312
  5. CHOLECALCIFEROL 1000 MG DAILY [Concomitant]
  6. LAMOTRIGINE 200 MG BID [Concomitant]
  7. FOLIC ACID 5 MG DAILY [Concomitant]
  8. OSELTAMIVIR 75 MG DAILY [Concomitant]
     Dates: start: 20210308, end: 20210312
  9. LEVETIRACETAM 1500 MG BID [Concomitant]

REACTIONS (4)
  - Contusion [None]
  - Petechiae [None]
  - Platelet count decreased [None]
  - Rash [None]

NARRATIVE: CASE EVENT DATE: 20210312
